FAERS Safety Report 8376556-3 (Version None)
Quarter: 2012Q2

REPORT INFORMATION
  Report Type: 
  Country: None (occurrence: None)
  Receive Date: 20120522
  Receipt Date: 20120514
  Transmission Date: 20120825
  Serious: Yes (Death, Hospitalization)
  Sender: FDA-Public Use
  Company Number: US-UCBSA-042204

PATIENT
  Age: 54 Year
  Sex: Male

DRUGS (6)
  1. LORTAB [Suspect]
  2. FENTANYL-100 [Suspect]
  3. CARBOPLATIN [Suspect]
     Indication: NON-SMALL CELL LUNG CANCER
     Dosage: 545 MG TOTAL
     Dates: start: 20110411, end: 20110101
  4. TAXOL [Suspect]
     Indication: NON-SMALL CELL LUNG CANCER
     Dosage: 269 MG TOTAL
     Dates: start: 20110411, end: 20110101
  5. ERBITUX [Suspect]
     Indication: NON-SMALL CELL LUNG CANCER
     Dosage: 447.5 MG TOTAL
     Dates: start: 20110411
  6. ATRIPLA [Suspect]

REACTIONS (4)
  - DEATH [None]
  - VOMITING [None]
  - COUGH [None]
  - NAUSEA [None]
